FAERS Safety Report 4362118-1 (Version None)
Quarter: 2004Q2

REPORT INFORMATION
  Report Type: 
  Country: None (occurrence: None)
  Receive Date: 20040520
  Receipt Date: 20040520
  Transmission Date: 20050107
  Serious: Yes (Life-Threatening, Hospitalization)
  Sender: FDA-Public Use
  Company Number: None

PATIENT
  Age: 17 Year
  Sex: Female
  Weight: 79.3795 kg

DRUGS (1)
  1. ZOLOFT [Suspect]

REACTIONS (4)
  - FEELING ABNORMAL [None]
  - NERVOUS SYSTEM DISORDER [None]
  - SOMNOLENCE [None]
  - SUICIDE ATTEMPT [None]
